FAERS Safety Report 12274810 (Version 1)
Quarter: 2016Q2

REPORT INFORMATION
  Report Type: Spontaneous
  Country: US (occurrence: US)
  Receive Date: 20160415
  Receipt Date: 20160415
  Transmission Date: 20160815
  Serious: No
  Sender: FDA-Public Use
  Company Number: US-ALLERGAN-1602618US

PATIENT
  Sex: Female
  Weight: 61.22 kg

DRUGS (3)
  1. UNITHROID [Concomitant]
     Active Substance: LEVOTHYROXINE SODIUM
     Indication: HYPOTHYROIDISM
     Dosage: 88 ?G, QD
     Route: 065
     Dates: start: 2005
  2. LATISSE [Suspect]
     Active Substance: BIMATOPROST
     Indication: SKIN COSMETIC PROCEDURE
     Dosage: 2 GTT, QPM
     Route: 061
     Dates: start: 201511, end: 20160216
  3. LATISSE [Suspect]
     Active Substance: BIMATOPROST
     Dosage: 2 GTT, QPM
     Route: 061
     Dates: start: 201505

REACTIONS (1)
  - Drug ineffective [Unknown]
